FAERS Safety Report 16630683 (Version 2)
Quarter: 2019Q4

REPORT INFORMATION
  Report Type: Spontaneous
  Country: DK (occurrence: DK)
  Receive Date: 20190725
  Receipt Date: 20191213
  Transmission Date: 20200122
  Serious: No
  Sender: FDA-Public Use
  Company Number: DK-ACCORD-148590

PATIENT
  Age: 36 Year
  Sex: Female

DRUGS (3)
  1. SERTRALINE ACCORD [Suspect]
     Active Substance: SERTRALINE HYDROCHLORIDE
     Indication: DEPRESSION
     Dosage: STRENGTH: 50 MG
     Route: 048
     Dates: start: 20190622, end: 20190628
  2. METRONIDAZOLE ACTAVIS [Suspect]
     Active Substance: METRONIDAZOLE
     Indication: TOOTH INFECTION
     Dosage: STRENGTH: 500MG
     Route: 048
     Dates: start: 20190617, end: 20190621
  3. CLINDAMYCIN. [Concomitant]
     Active Substance: CLINDAMYCIN
     Indication: INFECTION
     Dosage: STRENGTH: 300MG
     Route: 048
     Dates: start: 20190619, end: 20190625

REACTIONS (3)
  - Oral pruritus [Recovering/Resolving]
  - Urticaria [Recovering/Resolving]
  - Lip pruritus [Recovering/Resolving]

NARRATIVE: CASE EVENT DATE: 20190628
